FAERS Safety Report 8771035 (Version 1)
Quarter: 2012Q4

REPORT INFORMATION
  Report Type: 
  Country: US (occurrence: US)
  Receive Date: 20120906
  Receipt Date: 20120906
  Transmission Date: 20130627
  Serious: No
  Sender: FDA-Public Use
  Company Number: US-PFIZER INC-2012217500

PATIENT
  Age: 83 Year
  Sex: Male
  Weight: 63.49 kg

DRUGS (2)
  1. ADVIL [Suspect]
     Indication: TENDONITIS
     Dosage: 400 mg, three times a day
     Dates: start: 2012
  2. ZETIA [Concomitant]
     Indication: BLOOD CHOLESTEROL INCREASED
     Dosage: 20 mg, daily

REACTIONS (1)
  - Hypotension [Not Recovered/Not Resolved]
